FAERS Safety Report 8588624-1 (Version None)
Quarter: 2012Q3

REPORT INFORMATION
  Report Type: 
  Country: None (occurrence: None)
  Receive Date: 20120813
  Receipt Date: 20120808
  Transmission Date: 20120928
  Serious: Yes (Hospitalization)
  Sender: FDA-Public Use
  Company Number: PHHY2012FR069115

PATIENT
  Age: 70 Year
  Sex: Female

DRUGS (3)
  1. FLUOXETINE HCL [Concomitant]
     Dosage: 20 MG, DAILY
     Route: 048
     Dates: start: 20120622, end: 20120701
  2. TEGRETOL [Suspect]
     Indication: EPILEPSY
     Dosage: 60 MG, DAILY
     Route: 048
     Dates: end: 20120701
  3. LISINOPRIL [Concomitant]
     Indication: HYPERTENSION
     Dosage: 1 DF, DAILY
     Dates: end: 20120701

REACTIONS (7)
  - DECREASED APPETITE [None]
  - BLOOD PRESSURE INCREASED [None]
  - DYSPHAGIA [None]
  - MALAISE [None]
  - ASTHENIA [None]
  - HYPOREFLEXIA [None]
  - HYPONATRAEMIA [None]
